FAERS Safety Report 4916425-1 (Version None)
Quarter: 2006Q1

REPORT INFORMATION
  Report Type: 
  Country: None (occurrence: None)
  Receive Date: 20060214
  Receipt Date: 20060207
  Transmission Date: 20060701
  Serious: Yes (Other)
  Sender: FDA-Public Use
  Company Number: 8014906

PATIENT
  Age: 64 Year
  Sex: Female

DRUGS (6)
  1. KEPPRA [Suspect]
     Dosage: 2250 MG PO
     Route: 048
     Dates: start: 20041101
  2. LAMOTRIGINE [Concomitant]
  3. ENALAPRIL MALEATE [Concomitant]
  4. BENDROFLUMETHIAZIDE [Concomitant]
  5. CLOBAZAM [Concomitant]
  6. CALCICHEW D3 [Concomitant]

REACTIONS (1)
  - NEUTROPENIA [None]
